FAERS Safety Report 20047122 (Version 1)
Quarter: 2021Q4

REPORT INFORMATION
  Report Type: Spontaneous
  Country: FR (occurrence: FR)
  Receive Date: 20211109
  Receipt Date: 20211109
  Transmission Date: 20220304
  Serious: Yes (Other)
  Sender: FDA-Public Use
  Company Number: FR-ABBVIE-21K-056-4152817-00

PATIENT
  Age: 69 Year
  Sex: Female

DRUGS (2)
  1. DEPAKOTE [Suspect]
     Active Substance: DIVALPROEX SODIUM
     Indication: Bipolar disorder
     Dosage: 500 MG + 250 MG IN THE MORNING AND 2 TABLETS OF 500 MG IN THE EVENING FOR 3 YEARS
     Route: 065
  2. DOLIPRANE [Concomitant]
     Active Substance: ACETAMINOPHEN
     Indication: Product used for unknown indication
     Route: 065

REACTIONS (10)
  - Loss of consciousness [Unknown]
  - Faecaloma [Unknown]
  - Hypoaesthesia [Unknown]
  - Anal incontinence [Unknown]
  - Fluid retention [Unknown]
  - Paraesthesia [Unknown]
  - Body temperature decreased [Unknown]
  - Myalgia [Unknown]
  - Alopecia [Unknown]
  - Weight increased [Unknown]
